FAERS Safety Report 9493893 (Version 1)
Quarter: 2013Q3

REPORT INFORMATION
  Report Type: Spontaneous
  Country: FR (occurrence: FR)
  Receive Date: 20130903
  Receipt Date: 20130903
  Transmission Date: 20140515
  Serious: Yes (Death, Life-Threatening, Hospitalization, Other)
  Sender: FDA-Public Use
  Company Number: FR-PFIZER INC-2013252727

PATIENT
  Age: 79 Year
  Sex: Male

DRUGS (8)
  1. CORDARONE [Suspect]
     Dosage: 200 MG, DAILY
     Route: 048
  2. CARDENSIEL [Suspect]
     Dosage: 1.25 MG DAILY
     Route: 048
  3. KENZEN [Suspect]
     Dosage: UNK
     Route: 048
  4. NITRIDERM TTS [Suspect]
     Dosage: 10 MG, DAILY
     Route: 003
  5. PLAVIX [Concomitant]
  6. PRAVASTATIN SODIUM [Concomitant]
  7. SPECIAFOLDINE [Concomitant]
  8. NEODEX [Concomitant]

REACTIONS (8)
  - Cardiogenic shock [Fatal]
  - Dysphagia [Unknown]
  - Renal failure acute [Unknown]
  - Dysphonia [Unknown]
  - Pharyngitis [Unknown]
  - Bronchitis [Unknown]
  - Hiatus hernia [Unknown]
  - Oesophagitis [Unknown]
